FAERS Safety Report 7636224-X (Version None)
Quarter: 2011Q3

REPORT INFORMATION
  Report Type: 
  Country: None (occurrence: None)
  Receive Date: 20110722
  Receipt Date: 20110722
  Transmission Date: 20111222
  Serious: Yes (Other)
  Sender: FDA-Public Use
  Company Number: None

PATIENT
  Sex: Female
  Weight: 64.8644 kg

DRUGS (1)
  1. CEPHALEXIN [Suspect]
     Indication: ABSCESS
     Dosage: 1 EVERY 6 HOURS MOUTH
     Route: 048
     Dates: start: 20110628, end: 20110629

REACTIONS (6)
  - NAUSEA [None]
  - MALAISE [None]
  - MUSCULOSKELETAL PAIN [None]
  - DIZZINESS [None]
  - VERTIGO [None]
  - DRUG HYPERSENSITIVITY [None]
